FAERS Safety Report 9528711 (Version 1)
Quarter: 2013Q3

REPORT INFORMATION
  Report Type: Spontaneous
  Country: US (occurrence: US)
  Receive Date: 20130917
  Receipt Date: 20130917
  Transmission Date: 20140515
  Serious: No
  Sender: FDA-Public Use
  Company Number: US-BANPHARM-20130522

PATIENT
  Age: 69 Year
  Sex: Female
  Weight: 62.6 kg

DRUGS (2)
  1. ZYRTEC LIQUID GELS 10 MG [Suspect]
     Indication: HYPERSENSITIVITY
     Dosage: 2 DF, QD,
     Route: 048
     Dates: start: 20121001, end: 20121231
  2. RITALIN [Concomitant]
     Indication: DISTURBANCE IN ATTENTION
     Dosage: 10 MG, BID

REACTIONS (2)
  - Abdominal discomfort [Not Recovered/Not Resolved]
  - Incorrect dose administered [Unknown]
